FAERS Safety Report 9842692 (Version 2)
Quarter: 2014Q1

REPORT INFORMATION
  Report Type: Spontaneous
  Country: US (occurrence: US)
  Receive Date: 20140124
  Receipt Date: 20140124
  Transmission Date: 20141002
  Serious: Yes (Hospitalization)
  Sender: FDA-Public Use
  Company Number: US-KOWA-2014S1000065

PATIENT
  Sex: Female

DRUGS (2)
  1. LIVALO [Suspect]
     Indication: DYSLIPIDAEMIA
     Route: 048
     Dates: start: 20131202, end: 20131209
  2. LIVALO [Suspect]
     Indication: DYSLIPIDAEMIA
     Route: 048
     Dates: start: 20131209, end: 20140102

REACTIONS (2)
  - Cardiac failure congestive [Unknown]
  - Liver function test abnormal [Unknown]
